FAERS Safety Report 24757133 (Version 1)
Quarter: 2024Q4

REPORT INFORMATION
  Report Type: Spontaneous
  Country: US (occurrence: US)
  Receive Date: 20241220
  Receipt Date: 20241220
  Transmission Date: 20250114
  Serious: No
  Sender: REVANCE THERAPEUTICS
  Company Number: US-REVANCE THERAPEUTICS INC.-US-REV-2024-000677

PATIENT

DRUGS (1)
  1. DAXIBOTULINUMTOXIN A-LANM [Suspect]
     Active Substance: DAXIBOTULINUMTOXIN A-LANM
     Indication: Skin wrinkling
     Dosage: 140 U (GLABELLA, FRONTALIS, LCL, DAO, MINI NEFERTITI LIFT)
     Route: 065
     Dates: start: 20241105

REACTIONS (5)
  - Dizziness [Not Recovered/Not Resolved]
  - Vertigo [Unknown]
  - Headache [Recovered/Resolved]
  - Eyelid ptosis [Recovering/Resolving]
  - Off label use [Unknown]

NARRATIVE: CASE EVENT DATE: 20241101
